FAERS Safety Report 9897753 (Version 1)
Quarter: 2014Q1

REPORT INFORMATION
  Report Type: Spontaneous
  Country: BR (occurrence: BR)
  Receive Date: 20140214
  Receipt Date: 20140214
  Transmission Date: 20141002
  Serious: Yes (Other)
  Sender: FDA-Public Use
  Company Number: BR-SA-2014SA016217

PATIENT
  Age: 63 Year
  Sex: Female
  Weight: 82 kg

DRUGS (4)
  1. LANTUS [Suspect]
     Indication: TYPE 2 DIABETES MELLITUS
     Route: 058
     Dates: start: 201304
  2. ORAL ANTIDIABETICS [Suspect]
     Indication: TYPE 2 DIABETES MELLITUS
     Route: 048
  3. APIDRA [Concomitant]
     Indication: TYPE 2 DIABETES MELLITUS
     Dosage: DOSE: AS PER GLYCEMIC INDEX
     Route: 058
     Dates: start: 20131212
  4. CLIKSTAR [Concomitant]
     Indication: DEVICE THERAPY
     Dates: start: 201306

REACTIONS (2)
  - Pemphigoid [Not Recovered/Not Resolved]
  - Blister [Not Recovered/Not Resolved]
